FAERS Safety Report 11115803 (Version 2)
Quarter: 2015Q2

REPORT INFORMATION
  Report Type: Spontaneous
  Country: GB (occurrence: GB)
  Receive Date: 20150515
  Receipt Date: 20150611
  Transmission Date: 20150821
  Serious: Yes (Death, Hospitalization, Other)
  Sender: FDA-Public Use
  Company Number: GB-PFIZER INC-2015163023

PATIENT
  Age: 73 Year
  Sex: Female

DRUGS (11)
  1. SIMEPREVIR [Suspect]
     Active Substance: SIMEPREVIR
     Indication: HEPATITIS C
     Dosage: 150 MG, UNK
     Route: 048
     Dates: start: 20140906
  2. ZESTRIL [Suspect]
     Active Substance: LISINOPRIL
     Dosage: 20 MG, UNK
  3. ZANTAC [Suspect]
     Active Substance: RANITIDINE HYDROCHLORIDE
     Dosage: 150 MG, UNK
  4. AMLODIPINE BESILATE [Suspect]
     Active Substance: AMLODIPINE BESYLATE
     Dosage: 5 MG, UNK
  5. LOPRESSOR [Suspect]
     Active Substance: METOPROLOL TARTRATE
     Dosage: 50 MG, UNK
  6. SOFOSBUVIR [Suspect]
     Active Substance: SOFOSBUVIR
     Indication: HEPATITIS C
     Dosage: 400 MG, UNK
     Route: 048
     Dates: start: 20140906
  7. DACLATASVIR [Suspect]
     Active Substance: DACLATASVIR
     Indication: HEPATITIS C
     Dosage: 60 MG, UNK
     Route: 048
     Dates: start: 20141016
  8. FEMARA [Suspect]
     Active Substance: LETROZOLE
     Dosage: 2.5 MG, UNK
  9. SENOKOT /01226001/ [Suspect]
     Active Substance: SENNOSIDE B
     Dosage: UNK
     Route: 065
  10. ATORVASTATIN [Suspect]
     Active Substance: ATORVASTATIN
     Dosage: 10 MG, UNK
  11. ZYRTEC [Suspect]
     Active Substance: CETIRIZINE HYDROCHLORIDE
     Dosage: 10 MG, UNK

REACTIONS (2)
  - Death [Fatal]
  - Renal impairment [Unknown]

NARRATIVE: CASE EVENT DATE: 201412
